FAERS Safety Report 16207466 (Version 2)
Quarter: 2019Q3

REPORT INFORMATION
  Report Type: Spontaneous
  Country: US (occurrence: US)
  Receive Date: 20190417
  Receipt Date: 20190718
  Transmission Date: 20191004
  Serious: No
  Sender: FDA-Public Use
  Company Number: US-PFIZER INC-2019162295

PATIENT
  Age: 77 Year
  Sex: Female
  Weight: 62.14 kg

DRUGS (4)
  1. LYRICA [Suspect]
     Active Substance: PREGABALIN
     Indication: NEURALGIA
     Dosage: 50 MG, 3X/DAY
     Route: 048
     Dates: start: 2016
  2. OXYCODONE [Concomitant]
     Active Substance: OXYCODONE
     Indication: BACK PAIN
     Dosage: 5 MG, 3X/DAY
  3. LYRICA [Suspect]
     Active Substance: PREGABALIN
     Indication: BACK INJURY
  4. LYRICA [Suspect]
     Active Substance: PREGABALIN
     Indication: SCIATICA

REACTIONS (6)
  - Gait disturbance [Unknown]
  - Impaired driving ability [Unknown]
  - Weight increased [Unknown]
  - Malaise [Unknown]
  - Inner ear disorder [Unknown]
  - Dizziness [Unknown]

NARRATIVE: CASE EVENT DATE: 201906
